FAERS Safety Report 13718848 (Version 5)
Quarter: 2019Q4

REPORT INFORMATION
  Report Type: Spontaneous
  Country: US (occurrence: US)
  Receive Date: 20170705
  Receipt Date: 20191230
  Transmission Date: 20200122
  Serious: Yes (Hospitalization)
  Sender: FDA-Public Use
  Company Number: US-ACTELION-A-US2017-156117

PATIENT
  Sex: Female
  Weight: 59.86 kg

DRUGS (3)
  1. NIFEDIPINE. [Concomitant]
     Active Substance: NIFEDIPINE
  2. TRACLEER [Suspect]
     Active Substance: BOSENTAN
     Indication: PULMONARY ARTERIAL HYPERTENSION
     Dosage: 62.5 MG, BID
     Route: 048
  3. MIRTAZEPINE TEVA [Suspect]
     Active Substance: MIRTAZAPINE
     Indication: PRODUCT USED FOR UNKNOWN INDICATION
     Route: 065

REACTIONS (7)
  - Fine motor skill dysfunction [Unknown]
  - Memory impairment [Unknown]
  - Dementia [Unknown]
  - Rehabilitation therapy [Unknown]
  - Electrocardiogram abnormal [Unknown]
  - Decreased appetite [Unknown]
  - Abdominal discomfort [Unknown]
